FAERS Safety Report 5871267-8 (Version None)
Quarter: 2008Q3

REPORT INFORMATION
  Report Type: 
  Country: None (occurrence: None)
  Receive Date: 20080905
  Receipt Date: 20080828
  Transmission Date: 20090109
  Serious: Yes (Other)
  Sender: FDA-Public Use
  Company Number: SE-JNJFOC-20080806389

PATIENT
  Age: 87 Year
  Sex: Male

DRUGS (7)
  1. GALANTAMINE HYDROBROMIDE [Suspect]
     Indication: DEMENTIA ALZHEIMER'S TYPE
     Route: 065
  2. BETOLVIDON [Concomitant]
     Route: 065
  3. FOLACIN [Concomitant]
     Route: 065
  4. LASIX [Concomitant]
     Route: 065
  5. ENELAPRIL [Concomitant]
     Route: 065
  6. SIMVASTATIN [Concomitant]
     Route: 065
  7. ACACETIN [Concomitant]
     Route: 065

REACTIONS (1)
  - GYNAECOMASTIA [None]
